FAERS Safety Report 24419627 (Version 1)
Quarter: 2024Q4

REPORT INFORMATION
  Report Type: Spontaneous
  Country: IT (occurrence: IT)
  Receive Date: 20241010
  Receipt Date: 20241010
  Transmission Date: 20250115
  Serious: Yes (Other)
  Sender: CHEPLAPHARM
  Company Number: IT-CHEPLA-2024012695

PATIENT
  Age: 77 Year
  Sex: Male

DRUGS (15)
  1. CAPECITABINE [Suspect]
     Active Substance: CAPECITABINE
     Indication: Adenocarcinoma of colon
  2. OXALIPLATIN [Suspect]
     Active Substance: OXALIPLATIN
     Indication: Adenocarcinoma of colon
  3. BISOPROLOL [Concomitant]
     Active Substance: BISOPROLOL\BISOPROLOL FUMARATE
  4. ENALAPRIL [Concomitant]
     Active Substance: ENALAPRIL
  5. FUROSEMIDE [Concomitant]
     Active Substance: FUROSEMIDE
  6. EZETIMIBE\SIMVASTATIN [Concomitant]
     Active Substance: EZETIMIBE\SIMVASTATIN
  7. NIFEDIPINE [Concomitant]
     Active Substance: NIFEDIPINE
  8. CITALOPRAM [Concomitant]
     Active Substance: CITALOPRAM
  9. CHOLECALCIFEROL [Concomitant]
     Active Substance: CHOLECALCIFEROL
  10. DUTASTERIDE [Concomitant]
     Active Substance: DUTASTERIDE
  11. LANSOPRAZOLE [Concomitant]
     Active Substance: LANSOPRAZOLE
  12. PREDNISONE [Concomitant]
     Active Substance: PREDNISONE
  13. SEVELAMER [Concomitant]
     Active Substance: SEVELAMER
  14. DULAGLUTIDE [Concomitant]
     Active Substance: DULAGLUTIDE
  15. NINTEDANIB [Concomitant]
     Active Substance: NINTEDANIB

REACTIONS (2)
  - Interstitial lung disease [Unknown]
  - Bronchiectasis [Unknown]
